FAERS Safety Report 10402906 (Version 1)
Quarter: 2014Q3

REPORT INFORMATION
  Report Type: Spontaneous
  Country: CN (occurrence: CN)
  Receive Date: 20140822
  Receipt Date: 20140822
  Transmission Date: 20150326
  Serious: Yes (Death)
  Sender: FDA-Public Use
  Company Number: PHHY2014CN104989

PATIENT
  Age: 38 Year
  Sex: Female

DRUGS (6)
  1. CICLOSPORIN [Suspect]
     Active Substance: CYCLOSPORINE
     Indication: PROPHYLAXIS AGAINST GRAFT VERSUS HOST DISEASE
  2. METHOTREXATE [Suspect]
     Active Substance: METHOTREXATE
     Indication: PROPHYLAXIS AGAINST GRAFT VERSUS HOST DISEASE
  3. BUSULFAN [Suspect]
     Active Substance: BUSULFAN
     Indication: IMMUNOSUPPRESSION
  4. CYCLOPHOSPHAMIDE. [Suspect]
     Active Substance: CYCLOPHOSPHAMIDE
     Indication: IMMUNOSUPPRESSION
  5. DEXAMETHASONE. [Concomitant]
     Active Substance: DEXAMETHASONE
     Indication: ALLERGY PROPHYLAXIS
     Dosage: 5 MG, UNK
  6. DIPRAZINE [Concomitant]
     Indication: ALLERGY PROPHYLAXIS
     Dosage: 10 MG, UNK

REACTIONS (3)
  - BK virus infection [Fatal]
  - Multi-organ failure [Fatal]
  - Acute graft versus host disease [Fatal]
